FAERS Safety Report 19184827 (Version 1)
Quarter: 2021Q2

REPORT INFORMATION
  Report Type: Report from Study
  Country: US (occurrence: US)
  Receive Date: 20210427
  Receipt Date: 20210427
  Transmission Date: 20210717
  Serious: Yes (Hospitalization)
  Sender: FDA-Public Use
  Company Number: US-SUN PHARMACEUTICAL INDUSTRIES LTD-2021R1-292946

PATIENT
  Age: 37 Year
  Sex: Female

DRUGS (2)
  1. MORPHINE [Suspect]
     Active Substance: MORPHINE
     Indication: PAIN
     Dosage: 300 MILLIGRAM, DAILY
     Route: 065
  2. MORPHINE [Suspect]
     Active Substance: MORPHINE
     Dosage: 450 MG OF ADDITIONAL MORPHINE
     Route: 065

REACTIONS (1)
  - Pain [Unknown]
